FAERS Safety Report 5460431-8 (Version None)
Quarter: 2007Q3

REPORT INFORMATION
  Report Type: 
  Country: None (occurrence: None)
  Receive Date: 20070919
  Receipt Date: 20070821
  Transmission Date: 20080115
  Serious: Yes (Hospitalization)
  Sender: FDA-Public Use
  Company Number: US-ASTRAZENECA-2007UW16329

PATIENT
  Age: 30 Year
  Sex: Female
  Weight: 50 kg

DRUGS (5)
  1. SEROQUEL [Suspect]
     Indication: BIPOLAR DISORDER
     Route: 048
  2. SEROQUEL [Suspect]
     Route: 048
     Dates: start: 20070420, end: 20070420
  3. LAMICTAL [Concomitant]
  4. TRILEPTAL [Concomitant]
  5. CYMBALTA [Concomitant]

REACTIONS (5)
  - AKATHISIA [None]
  - BLOOD PRESSURE DECREASED [None]
  - DELIRIUM [None]
  - PALPITATIONS [None]
  - TACHYCARDIA [None]
